FAERS Safety Report 8439097-0 (Version None)
Quarter: 2012Q2

REPORT INFORMATION
  Report Type: 
  Country: None (occurrence: None)
  Receive Date: 20120607
  Receipt Date: 20120524
  Transmission Date: 20120825
  Serious: Yes (Hospitalization)
  Sender: FDA-Public Use
  Company Number: LV-1192367

PATIENT
  Age: 18 Month
  Sex: Female

DRUGS (2)
  1. CYCLOGYL [Suspect]
     Indication: INVESTIGATION
     Dosage: (1-2 GTTS OPHTHALMIC)
     Route: 047
     Dates: start: 20120521, end: 20120521
  2. CLEMASTINE FUMARATE [Concomitant]

REACTIONS (2)
  - ABNORMAL SLEEP-RELATED EVENT [None]
  - ERYTHEMA [None]
